FAERS Safety Report 6786119-9 (Version None)
Quarter: 2010Q2

REPORT INFORMATION
  Report Type: 
  Country: None (occurrence: None)
  Receive Date: 20100623
  Receipt Date: 20100616
  Transmission Date: 20101027
  Serious: Yes (Other)
  Sender: FDA-Public Use
  Company Number: GB-TEVA-227451ISR

PATIENT
  Age: 75 Year
  Sex: Male

DRUGS (2)
  1. AMOXICILLIN [Suspect]
     Indication: DRUG USE FOR UNKNOWN INDICATION
  2. VALPROATE SODIUM [Suspect]
     Indication: CONVULSION
     Route: 042
     Dates: start: 20100213

REACTIONS (2)
  - CONVULSION [None]
  - INTERNATIONAL NORMALISED RATIO INCREASED [None]
